FAERS Safety Report 4332612-8 (Version None)
Quarter: 2004Q1

REPORT INFORMATION
  Report Type: 
  Country: None (occurrence: None)
  Receive Date: 20040330
  Receipt Date: 20040311
  Transmission Date: 20041129
  Serious: Yes (Hospitalization)
  Sender: FDA-Public Use
  Company Number: A02200400898

PATIENT
  Age: 57 Year
  Sex: Male

DRUGS (6)
  1. STILNOX - (ZOLPIDEM) - TABLET - 10 MG [Suspect]
     Indication: ANXIETY
     Dosage: 10 MG OD
     Route: 048
  2. MYOLASTAN - (TETRAZEPAM) - TABLET - 50 MG [Suspect]
     Dosage: 50 MG OD
     Route: 048
  3. ACUILIX - (QUINAPRIL/HYDROCHLOROTHIAZIDE) - TABLET - 32.5 MG [Suspect]
     Indication: HYPERTENSION
     Route: 048
  4. SEROPRAM - (CITALOPRAM HYDROBROMIDE) - TABLET - 20 MG [Suspect]
     Indication: DEPRESSION
     Dosage: 40 MG QD
     Route: 048
     Dates: start: 20030302, end: 20030903
  5. MEDROL [Suspect]
     Indication: MYALGIA
     Dosage: 16 MG OD
     Route: 048
     Dates: start: 20030811, end: 20030811
  6. MEDROL [Suspect]
     Indication: MYOSITIS
     Dosage: 16 MG OD
     Route: 048
     Dates: start: 20030811, end: 20030811

REACTIONS (3)
  - BLOOD CREATINE PHOSPHOKINASE INCREASED [None]
  - MUSCLE DISORDER [None]
  - MYALGIA [None]
